FAERS Safety Report 18834995 (Version 1)
Quarter: 2021Q1

REPORT INFORMATION
  Report Type: Spontaneous
  Country: US (occurrence: US)
  Receive Date: 20210203
  Receipt Date: 20210203
  Transmission Date: 20210419
  Serious: Yes (Hospitalization, Other)
  Sender: FDA-Public Use
  Company Number: None

PATIENT
  Age: 62 Year
  Sex: Female

DRUGS (13)
  1. SMZ/TMP [Concomitant]
     Active Substance: SULFAMETHOXAZOLE\TRIMETHOPRIM
  2. VALGANCICLOV [Concomitant]
  3. ADMELOG SOLO [Concomitant]
  4. CALCITRIOL. [Concomitant]
     Active Substance: CALCITRIOL
  5. PREDNISONE. [Concomitant]
     Active Substance: PREDNISONE
  6. SILDENAFIL. [Suspect]
     Active Substance: SILDENAFIL
     Indication: PULMONARY ARTERIAL HYPERTENSION
     Route: 048
  7. TACROLIMUS. [Concomitant]
     Active Substance: TACROLIMUS
  8. FEROSUL [Concomitant]
     Active Substance: FERROUS SULFATE
  9. ASPIRIN. [Concomitant]
     Active Substance: ASPIRIN
  10. TORSEMIDE. [Concomitant]
     Active Substance: TORSEMIDE
  11. FLUCONAZOLE. [Concomitant]
     Active Substance: FLUCONAZOLE
  12. PRAVASTATIN. [Concomitant]
     Active Substance: PRAVASTATIN
  13. MYCOPHENOLAT [Concomitant]
     Active Substance: MYCOPHENOLATE MOFETIL

REACTIONS (2)
  - Renal transplant [None]
  - Heart transplant [None]

NARRATIVE: CASE EVENT DATE: 20210129
